FAERS Safety Report 8835414 (Version 1)
Quarter: 2012Q4

REPORT INFORMATION
  Report Type: 
  Country: BR (occurrence: BR)
  Receive Date: 20121011
  Receipt Date: 20121011
  Transmission Date: 20130627
  Serious: Yes (Hospitalization, Other)
  Sender: FDA-Public Use
  Company Number: BR-ASTRAZENECA-2012SE76659

PATIENT
  Age: 90 Year
  Sex: Female

DRUGS (9)
  1. OMEPRAZOLE [Suspect]
     Indication: CORROSIVE GASTRITIS
     Route: 048
     Dates: end: 201205
  2. PROPRANOLOL [Suspect]
     Indication: ARRHYTHMIA
     Route: 048
     Dates: start: 201205
  3. PROPRANOLOL [Suspect]
     Indication: CEREBROVASCULAR ACCIDENT
     Route: 048
     Dates: start: 201205
  4. COUMADIN [Concomitant]
     Indication: ARRHYTHMIA
     Route: 048
  5. COUMADIN [Concomitant]
     Indication: CEREBROVASCULAR ACCIDENT
     Route: 048
  6. ANCORON [Concomitant]
     Indication: ARRHYTHMIA
     Route: 048
  7. ANCORON [Concomitant]
     Indication: CEREBROVASCULAR ACCIDENT
     Route: 048
  8. OSCAL D [Concomitant]
     Indication: ARRHYTHMIA
     Route: 048
  9. OSCAL D [Concomitant]
     Indication: CEREBROVASCULAR ACCIDENT
     Route: 048

REACTIONS (7)
  - Arrhythmia [Recovering/Resolving]
  - Cerebrovascular accident [Recovered/Resolved]
  - Parkinson^s disease [Not Recovered/Not Resolved]
  - Speech disorder [Not Recovered/Not Resolved]
  - Dysphagia [Not Recovered/Not Resolved]
  - Alopecia [Not Recovered/Not Resolved]
  - Insomnia [Not Recovered/Not Resolved]
